FAERS Safety Report 17769928 (Version 2)
Quarter: 2020Q2

REPORT INFORMATION
  Report Type: Spontaneous
  Country: US (occurrence: US)
  Receive Date: 20200512
  Receipt Date: 20200525
  Transmission Date: 20200714
  Serious: Yes (Other)
  Sender: FDA-Public Use
  Company Number: US-TEVA-2020-US-1235567

PATIENT
  Age: 59 Year
  Sex: Male

DRUGS (1)
  1. ARIPIPRAZOLE. [Suspect]
     Active Substance: ARIPIPRAZOLE
     Route: 065
     Dates: start: 2016, end: 2018

REACTIONS (1)
  - Tardive dyskinesia [Unknown]

NARRATIVE: CASE EVENT DATE: 2018
